FAERS Safety Report 22200850 (Version 2)
Quarter: 2023Q2

REPORT INFORMATION
  Report Type: Other
  Country: US (occurrence: None)
  Receive Date: 20230412
  Receipt Date: 20230428
  Transmission Date: 20230721
  Serious: No
  Sender: FDA-Public Use
  Company Number: US-ROCHE-3328393

PATIENT
  Age: 29 Year
  Sex: Female
  Weight: 108.96 kg

DRUGS (2)
  1. OCREVUS [Suspect]
     Active Substance: OCRELIZUMAB
     Indication: Relapsing-remitting multiple sclerosis
     Dosage: SPLIT DOSE, PATIENT REPORTED IT IS NOT THE FULL DOSE. ;ONGOING: YES
     Route: 042
     Dates: start: 20230406
  2. OCREVUS [Suspect]
     Active Substance: OCRELIZUMAB
     Indication: Relapsing multiple sclerosis

REACTIONS (12)
  - Influenza like illness [Not Recovered/Not Resolved]
  - Lethargy [Not Recovered/Not Resolved]
  - Asthenia [Not Recovered/Not Resolved]
  - Feeling cold [Not Recovered/Not Resolved]
  - Pyrexia [Not Recovered/Not Resolved]
  - Pruritus [Recovered/Resolved]
  - Micturition disorder [Not Recovered/Not Resolved]
  - Human rhinovirus test positive [Not Recovered/Not Resolved]
  - Cough [Not Recovered/Not Resolved]
  - Vision blurred [Recovered/Resolved]
  - Enterovirus test positive [Unknown]
  - Pharyngitis streptococcal [Not Recovered/Not Resolved]

NARRATIVE: CASE EVENT DATE: 20230406
